FAERS Safety Report 23073670 (Version 1)
Quarter: 2023Q4

REPORT INFORMATION
  Report Type: Spontaneous
  Country: US (occurrence: US)
  Receive Date: 20231017
  Receipt Date: 20231017
  Transmission Date: 20240110
  Serious: Yes (Other)
  Sender: FDA-Public Use
  Company Number: US-PFIZER INC-202300322064

PATIENT
  Age: 20 Year
  Sex: Female
  Weight: 54.43 kg

DRUGS (1)
  1. DEPO-PROVERA [Suspect]
     Active Substance: MEDROXYPROGESTERONE ACETATE
     Dosage: THROUGH HER ARM EVERY THREE STARTED IN APR2023 OR JUL2023
     Dates: start: 2023

REACTIONS (2)
  - Haemorrhage [Not Recovered/Not Resolved]
  - Drug intolerance [Not Recovered/Not Resolved]

NARRATIVE: CASE EVENT DATE: 20230101
